FAERS Safety Report 6129758-0 (Version None)
Quarter: 2009Q1

REPORT INFORMATION
  Report Type: 
  Country: None (occurrence: None)
  Receive Date: 20090324
  Receipt Date: 20090319
  Transmission Date: 20090719
  Serious: Yes (Other)
  Sender: FDA-Public Use
  Company Number: B0566141A

PATIENT
  Age: 39 Year
  Sex: Male

DRUGS (1)
  1. CLENIL MODULITE [Suspect]
     Indication: ASTHMA
     Dosage: 400MCG PER DAY
     Route: 055
     Dates: start: 20080714, end: 20080715

REACTIONS (1)
  - THROAT TIGHTNESS [None]
